FAERS Safety Report 18057297 (Version 1)
Quarter: 2020Q3

REPORT INFORMATION
  Report Type: Spontaneous
  Country: CA (occurrence: CA)
  Receive Date: 20200722
  Receipt Date: 20200722
  Transmission Date: 20201103
  Serious: Yes (Other)
  Sender: FDA-Public Use
  Company Number: CA-ASCEND THERAPEUTICS US, LLC-2087636

PATIENT
  Age: 38 Year
  Sex: Male

DRUGS (3)
  1. ESTROGEL [Suspect]
     Active Substance: ESTRADIOL
     Indication: TESTIS CANCER
     Route: 065
  2. SPIRONOLACTONE. [Suspect]
     Active Substance: SPIRONOLACTONE
     Route: 065
  3. ESTROGEL [Suspect]
     Active Substance: ESTRADIOL

REACTIONS (7)
  - Back pain [Unknown]
  - Testicular mass [Unknown]
  - Retroperitoneal mass [Unknown]
  - Lymphadenopathy [Unknown]
  - Weight decreased [Unknown]
  - Abdominal pain [Unknown]
  - Pelvic venous thrombosis [Unknown]
